FAERS Safety Report 8904154 (Version 2)
Quarter: 2012Q4

REPORT INFORMATION
  Report Type: 
  Country: US (occurrence: US)
  Receive Date: 20121112
  Receipt Date: 20121205
  Transmission Date: 20130627
  Serious: No
  Sender: FDA-Public Use
  Company Number: US-PFIZER INC-2012281471

PATIENT
  Age: 35 Year
  Sex: Male
  Weight: 75.28 kg

DRUGS (3)
  1. LYRICA [Suspect]
     Indication: NERVE PAIN
     Dosage: 50 mg, 3x/day
     Route: 048
     Dates: start: 201205, end: 20121105
  2. TEMAZEPAM [Concomitant]
     Indication: CHRONIC INSOMNIA
     Dosage: UNK, 1x/day
  3. METHYLPHENIDATE [Concomitant]
     Dosage: 10 mg, 2x/day

REACTIONS (9)
  - Disturbance in attention [Not Recovered/Not Resolved]
  - Nausea [Not Recovered/Not Resolved]
  - Tremor [Not Recovered/Not Resolved]
  - Anxiety [Not Recovered/Not Resolved]
  - Restlessness [Not Recovered/Not Resolved]
  - Pain in extremity [Not Recovered/Not Resolved]
  - Withdrawal syndrome [Not Recovered/Not Resolved]
  - Feeling abnormal [Not Recovered/Not Resolved]
  - Fear [Not Recovered/Not Resolved]
